FAERS Safety Report 5165424-6 (Version None)
Quarter: 2006Q4

REPORT INFORMATION
  Report Type: 
  Country: None (occurrence: None)
  Receive Date: 20061206
  Receipt Date: 20061127
  Transmission Date: 20070319
  Serious: Yes (Hospitalization)
  Sender: FDA-Public Use
  Company Number: FR-AVENTIS-200614194FR

PATIENT
  Age: 87 Year
  Sex: Female

DRUGS (4)
  1. LASILIX                            /00032601/ [Suspect]
     Route: 048
     Dates: start: 20061024, end: 20061030
  2. LASILIX                            /00032601/ [Suspect]
     Route: 048
     Dates: start: 20061031
  3. ALDACTONE [Suspect]
     Route: 048
     Dates: start: 20061024, end: 20061030
  4. COTAREG [Suspect]
     Route: 048
     Dates: start: 20061024, end: 20061030

REACTIONS (5)
  - DIZZINESS [None]
  - DRUG INTERACTION [None]
  - HYPONATRAEMIA [None]
  - MALAISE [None]
  - RENAL FAILURE ACUTE [None]
